FAERS Safety Report 6611156-4 (Version None)
Quarter: 2010Q1

REPORT INFORMATION
  Report Type: 
  Country: None (occurrence: None)
  Receive Date: 20100302
  Receipt Date: 20100302
  Transmission Date: 20100710
  Serious: Yes (Other)
  Sender: FDA-Public Use
  Company Number: None

PATIENT
  Sex: Male
  Weight: 83.0083 kg

DRUGS (2)
  1. GAMUNEX [Suspect]
     Indication: IMMUNODEFICIENCY COMMON VARIABLE
     Dosage: 50G ONCE VERY 4 WEEKS IV DRIP
     Route: 041
     Dates: start: 20100228, end: 20100228
  2. GAMUNEX [Suspect]
     Dosage: 50G ONCE EVERY 4 WEEKS IV DRIP
     Route: 041
     Dates: start: 20100228, end: 20100228

REACTIONS (3)
  - CHILLS [None]
  - HEADACHE [None]
  - PYREXIA [None]
